FAERS Safety Report 6039333-4 (Version None)
Quarter: 2009Q1

REPORT INFORMATION
  Report Type: 
  Country: None (occurrence: None)
  Receive Date: 20090115
  Receipt Date: 20090105
  Transmission Date: 20090719
  Serious: Yes (Other)
  Sender: FDA-Public Use
  Company Number: US-GENENTECH-275396

PATIENT
  Age: 67 Year
  Sex: Female

DRUGS (6)
  1. BEVACIZUMAB [Suspect]
     Indication: PANCREATIC CARCINOMA
     Dosage: 5 MG/KG, Q2W
     Route: 065
  2. CAPECITABINE [Suspect]
     Indication: PANCREATIC CARCINOMA
     Dosage: 825 MG/M2, BID
     Route: 065
  3. GEMCITABINE [Suspect]
     Indication: PANCREATIC CARCINOMA
     Dosage: 1000 MG/M2, 1/WEEK
     Route: 042
  4. GEMCITABINE [Suspect]
     Dosage: 1500 MG/M2, Q2W
  5. GEMCITABINE [Suspect]
     Dosage: 1000 MG/M2, Q2W
  6. INFLIXIMAB [Concomitant]
     Indication: RHEUMATOID ARTHRITIS

REACTIONS (8)
  - GASTRIC MUCOSAL LESION [None]
  - GASTRIC ULCER [None]
  - GASTROINTESTINAL HAEMORRHAGE [None]
  - HAEMOGLOBIN DECREASED [None]
  - RECALL PHENOMENON [None]
  - THROMBOCYTOPENIA [None]
  - UTERINE ATROPHY [None]
  - VAGINAL HAEMORRHAGE [None]
